FAERS Safety Report 14433808 (Version 5)
Quarter: 2019Q1

REPORT INFORMATION
  Report Type: Report from Study
  Country: US (occurrence: US)
  Receive Date: 20180124
  Receipt Date: 20190320
  Transmission Date: 20190417
  Serious: Yes (Hospitalization)
  Sender: FDA-Public Use
  Company Number: US-ACTELION-A-NJ2018-166173

PATIENT
  Age: 1 Year
  Sex: Female

DRUGS (15)
  1. POTASSIUM [Concomitant]
     Active Substance: POTASSIUM
     Dosage: UNK
     Dates: start: 20180412
  2. CARAFATE [Concomitant]
     Active Substance: SUCRALFATE
     Dosage: 1 GM/10 ML
     Dates: start: 20180412
  3. LOVENOX [Concomitant]
     Active Substance: ENOXAPARIN SODIUM
     Dosage: 30/0.3 ML, UNK
     Dates: start: 20180412
  4. DIAZEPAM. [Concomitant]
     Active Substance: DIAZEPAM
     Dosage: 1 MG/ML, UNK
     Dates: start: 20180412
  5. SILDENAFIL. [Concomitant]
     Active Substance: SILDENAFIL
     Dosage: 20 MG, UNK
     Dates: start: 20180115
  6. RANITIDINE. [Concomitant]
     Active Substance: RANITIDINE
     Dosage: 15 MG/ML, UNK
     Dates: start: 20180412
  7. ZYRTEC [Concomitant]
     Active Substance: CETIRIZINE HYDROCHLORIDE
     Dosage: 5MG/5ML
     Dates: start: 20180412
  8. DIURIL [Concomitant]
     Active Substance: CHLOROTHIAZIDE
     Dosage: 250/5 ML, UNK
     Dates: start: 20180412
  9. MORPHINE [Concomitant]
     Active Substance: MORPHINE
     Dosage: 100/5 ML, UNK
     Dates: start: 20180412
  10. BETHANECHOL CHLORIDE. [Concomitant]
     Active Substance: BETHANECHOL CHLORIDE
     Dosage: UNK
     Dates: start: 20180412
  11. REMODULIN [Concomitant]
     Active Substance: TREPROSTINIL
     Dosage: 1 MG/ML, UNK
     Dates: start: 20180115
  12. TRACLEER [Suspect]
     Active Substance: BOSENTAN
     Dosage: 16 MG, BID
     Route: 048
  13. TRACLEER [Suspect]
     Active Substance: BOSENTAN
     Indication: PULMONARY ARTERIAL HYPERTENSION
     Dosage: 62.5 MG, QD
     Route: 048
     Dates: start: 20171121
  14. BUMETANIDE. [Concomitant]
     Active Substance: BUMETANIDE
     Dosage: 1 MG, UNK
     Dates: start: 20180412
  15. DIGOXIN. [Concomitant]
     Active Substance: DIGOXIN
     Dosage: 50 MCG/ML, UNK
     Dates: start: 20180412

REACTIONS (5)
  - Patent ductus arteriosus repair [Recovered/Resolved]
  - Respiratory distress [Recovered/Resolved]
  - Emergency care [Recovered/Resolved]
  - Viral infection [Unknown]
  - Gastroenteritis viral [Recovered/Resolved]

NARRATIVE: CASE EVENT DATE: 20171226
